FAERS Safety Report 11988783 (Version 2)
Quarter: 2016Q1

REPORT INFORMATION
  Report Type: Spontaneous
  Country: US (occurrence: US)
  Receive Date: 20160202
  Receipt Date: 20160202
  Transmission Date: 20160526
  Serious: No
  Sender: FDA-Public Use
  Company Number: US-HORIZON-BUP-RAV-0028-2016

PATIENT
  Age: 20 Year
  Sex: Male

DRUGS (5)
  1. ARGININE [Concomitant]
     Active Substance: ARGININE
     Indication: PRODUCT USED FOR UNKNOWN INDICATION
  2. BUPHENYL [Suspect]
     Active Substance: SODIUM PHENYLBUTYRATE
     Indication: UREA CYCLE ENZYME DEFICIENCY
  3. CYCLINEX [Concomitant]
     Indication: PRODUCT USED FOR UNKNOWN INDICATION
  4. CITRULLINE [Concomitant]
     Active Substance: CITRULLINE
  5. RAVICTI [Suspect]
     Active Substance: GLYCEROL PHENYLBUTYRATE
     Indication: UREA CYCLE ENZYME DEFICIENCY
     Dosage: 5 ML THREE TIMES DAILY

REACTIONS (1)
  - Skin odour abnormal [Not Recovered/Not Resolved]
